FAERS Safety Report 6000296-9 (Version None)
Quarter: 2008Q4

REPORT INFORMATION
  Report Type: 
  Country: None (occurrence: None)
  Receive Date: 20081215
  Receipt Date: 20081207
  Transmission Date: 20090506
  Serious: Yes (Other)
  Sender: FDA-Public Use
  Company Number: GB-ROCHE-601599

PATIENT
  Sex: Female
  Weight: 98.8 kg

DRUGS (9)
  1. ORLISTAT [Suspect]
     Indication: OBESITY
     Route: 048
     Dates: start: 20081030, end: 20081120
  2. METFORMIN HCL [Concomitant]
     Route: 048
  3. NOVAMIX [Concomitant]
     Dosage: 52 UNITS IN THE MORNING, 46 UNITS IN THE EVENING.  DRUG REPORTED AS NOVA MIX 30.
  4. ATENOLOL [Concomitant]
     Indication: BLOOD PRESSURE
     Route: 048
  5. LISINOPRIL [Concomitant]
     Indication: BLOOD PRESSURE
     Route: 048
  6. SIMVASTATIN [Concomitant]
     Route: 048
  7. AMITRIPTYLINE HCL [Concomitant]
     Route: 048
  8. 1 CONCOMITANT DRUG [Concomitant]
     Indication: CEREBROVASCULAR ACCIDENT PROPHYLAXIS
     Dosage: DRUG REPORTED AS ASAFANTIN RETARD.
     Route: 048
  9. 1 CONCOMITANT DRUG [Concomitant]
     Indication: SOMNOLENCE
     Dosage: DRUG REPORTED AS TAMEZEPAM.
     Route: 048

REACTIONS (1)
  - FACIAL PALSY [None]
